FAERS Safety Report 20426294 (Version 1)
Quarter: 2022Q1

REPORT INFORMATION
  Report Type: Report from Study
  Country: US (occurrence: US)
  Receive Date: 20220204
  Receipt Date: 20220204
  Transmission Date: 20220423
  Serious: No
  Sender: FDA-Public Use
  Company Number: US-EXELIXIS-CABO-21041981

PATIENT
  Sex: Female

DRUGS (15)
  1. CABOMETYX [Suspect]
     Active Substance: CABOZANTINIB S-MALATE
     Indication: Renal cell carcinoma
     Dosage: 20 MG, QD
     Route: 048
  2. CABOMETYX [Suspect]
     Active Substance: CABOZANTINIB S-MALATE
     Indication: Metastases to liver
  3. CABOMETYX [Suspect]
     Active Substance: CABOZANTINIB S-MALATE
     Indication: Cholangiocarcinoma
  4. BUPROPION HYDROCHLORIDE [Concomitant]
     Active Substance: BUPROPION HYDROCHLORIDE
  5. CALCITRIOL [Concomitant]
     Active Substance: CALCITRIOL
  6. DEXILANT [Concomitant]
     Active Substance: DEXLANSOPRAZOLE
  7. DRONABINOL [Concomitant]
     Active Substance: DRONABINOL
  8. GABAPENTIN [Concomitant]
     Active Substance: GABAPENTIN
  9. LEVOTHYROXINE [Concomitant]
     Active Substance: LEVOTHYROXINE
  10. MAGNESIUM [Concomitant]
     Active Substance: MAGNESIUM
  11. MELATONIN [Concomitant]
     Active Substance: MELATONIN
  12. ONDANSETRON [Concomitant]
     Active Substance: ONDANSETRON
  13. OXYCODONE [Concomitant]
     Active Substance: OXYCODONE
  14. PROCHLORPERAZINE MALEATE [Concomitant]
     Active Substance: PROCHLORPERAZINE MALEATE
  15. TRINTELLIX [Concomitant]
     Active Substance: VORTIOXETINE HYDROBROMIDE

REACTIONS (6)
  - Tooth loss [Not Recovered/Not Resolved]
  - Contusion [Not Recovered/Not Resolved]
  - Skin exfoliation [Not Recovered/Not Resolved]
  - Diarrhoea [Not Recovered/Not Resolved]
  - Nausea [Not Recovered/Not Resolved]
  - Vomiting [Recovering/Resolving]
